FAERS Safety Report 19631400 (Version 1)
Quarter: 2021Q3

REPORT INFORMATION
  Report Type: Other
  Country: IE (occurrence: IE)
  Receive Date: 20210728
  Receipt Date: 20210728
  Transmission Date: 20211014
  Serious: Yes (Other)
  Sender: FDA-Public Use
  Company Number: IE-ROCHE-2875005

PATIENT

DRUGS (1)
  1. CAPECITABINE. [Suspect]
     Active Substance: CAPECITABINE
     Indication: RECTAL CANCER
     Route: 065

REACTIONS (10)
  - Cardiotoxicity [Unknown]
  - Urethritis [Unknown]
  - Gastrointestinal toxicity [Unknown]
  - Enteritis [Unknown]
  - Stomatitis [Unknown]
  - Pelvic fracture [Unknown]
  - Palmar-plantar erythrodysaesthesia syndrome [Unknown]
  - Proctitis [Unknown]
  - Small intestinal obstruction [Unknown]
  - Haematotoxicity [Unknown]
